FAERS Safety Report 18762467 (Version 1)
Quarter: 2021Q1

REPORT INFORMATION
  Report Type: Spontaneous
  Country: US (occurrence: US)
  Receive Date: 20210119
  Receipt Date: 20210119
  Transmission Date: 20210419
  Serious: No
  Sender: FDA-Public Use
  Company Number: None

PATIENT
  Age: 54 Year
  Sex: Male
  Weight: 96.71 kg

DRUGS (1)
  1. AMLODIPINE [Suspect]
     Active Substance: AMLODIPINE BESYLATE
     Route: 048
     Dates: start: 20200922, end: 20201007

REACTIONS (7)
  - Erythema [None]
  - Rash erythematous [None]
  - Rash [None]
  - Pruritus [None]
  - Oedema peripheral [None]
  - Exfoliative rash [None]
  - Tenderness [None]

NARRATIVE: CASE EVENT DATE: 20201007
